FAERS Safety Report 18469826 (Version 1)
Quarter: 2020Q4

REPORT INFORMATION
  Report Type: Spontaneous
  Country: CA (occurrence: CA)
  Receive Date: 20201105
  Receipt Date: 20201105
  Transmission Date: 20210114
  Serious: Yes (Other)
  Sender: FDA-Public Use
  Company Number: CA-PFIZER INC-2020374881

PATIENT
  Age: 63 Year
  Sex: Female

DRUGS (1)
  1. SULFASALAZINE. [Suspect]
     Active Substance: SULFASALAZINE
     Indication: RHEUMATOID ARTHRITIS
     Dosage: UNK
     Route: 065
     Dates: start: 2008

REACTIONS (6)
  - Mastication disorder [Unknown]
  - Skin haemorrhage [Unknown]
  - Drug ineffective [Unknown]
  - Skin erosion [Unknown]
  - Rash [Unknown]
  - Pain in extremity [Unknown]
